FAERS Safety Report 9805733 (Version 1)
Quarter: 2014Q1

REPORT INFORMATION
  Report Type: Spontaneous
  Country: FR (occurrence: FR)
  Receive Date: 20140109
  Receipt Date: 20140109
  Transmission Date: 20141002
  Serious: Yes (Death)
  Sender: FDA-Public Use
  Company Number: FR-009507513-1401FRA000097

PATIENT
  Age: 63 Year
  Sex: Female

DRUGS (8)
  1. TEMODAL [Suspect]
     Dosage: 250 MG, UNK
     Route: 048
     Dates: start: 20130401
  2. LEVOTHYROX [Concomitant]
     Dosage: 75 MICROGRAM, QD
     Route: 048
  3. ZOPHREN (ONDANSETRON HYDROCHLORIDE) [Concomitant]
     Dosage: 8 MG, UNK
     Route: 048
  4. FUROSEMIDE [Concomitant]
     Dosage: 40 MG, UNK
     Route: 048
  5. SPIRONOLACTONE [Concomitant]
     Dosage: 75 MG, UNK
     Route: 048
  6. MICARDIS PLUS [Concomitant]
     Dosage: 1 DF, UNK
     Route: 048
  7. NIZORAL [Concomitant]
     Dosage: 400 MG, QD
     Route: 048
  8. DIFFU-K [Concomitant]
     Dosage: 600 MG, QD
     Route: 048

REACTIONS (2)
  - Secondary immunodeficiency [Fatal]
  - Pneumocystis jirovecii pneumonia [Fatal]
